FAERS Safety Report 8163693-1 (Version None)
Quarter: 2012Q1

REPORT INFORMATION
  Report Type: 
  Country: None (occurrence: None)
  Receive Date: 20120224
  Receipt Date: 20120210
  Transmission Date: 20120608
  Serious: Yes (Hospitalization, Other)
  Sender: FDA-Public Use
  Company Number: PHHY2009JP36722

PATIENT
  Sex: Female
  Weight: 45 kg

DRUGS (12)
  1. RED CELLS MAP [Concomitant]
     Dosage: 2 U EVEY 4 WEEKS
     Dates: start: 20090827, end: 20100915
  2. RED CELLS MAP [Concomitant]
     Dosage: 2 U EVERY 8 WEEKS
     Dates: start: 20100928, end: 20101203
  3. PLATELETS [Concomitant]
     Dosage: 10 U EVERY WEEK
     Dates: start: 20071004, end: 20090304
  4. RED CELLS MAP [Concomitant]
     Dosage: 2 U EVERY WEEK
     Dates: start: 20071004, end: 20090304
  5. DESFERAL [Concomitant]
     Indication: IRON OVERLOAD
     Dosage: 500 MG, UNK
     Route: 030
     Dates: start: 20071211, end: 20080819
  6. PLATELETS [Concomitant]
     Dosage: 10 U EVERY 4 WEEK
     Dates: start: 20090827, end: 20120112
  7. RED CELLS MAP [Concomitant]
     Dosage: 10 U, QW
     Dates: start: 20090304, end: 20090826
  8. LEVOFLOXACIN [Concomitant]
     Dosage: 300 MG, UNK
     Route: 048
     Dates: start: 20071004, end: 20100330
  9. EXJADE [Suspect]
     Indication: IRON OVERLOAD
     Dosage: 500 MG DAILY
     Route: 048
     Dates: start: 20080826, end: 20110412
  10. ARMODAFINIL [Concomitant]
     Dosage: 100 MG, UNK
     Route: 048
     Dates: start: 20071004, end: 20091201
  11. ZOLPIDEM [Concomitant]
     Dosage: 5 MG, UNK
     Route: 048
     Dates: start: 20071120, end: 20110930
  12. NEORAL [Suspect]
     Indication: APLASTIC ANAEMIA
     Dosage: 100 MG, DAILY
     Route: 048
     Dates: start: 20080819, end: 20110930

REACTIONS (7)
  - ATRIOVENTRICULAR BLOCK COMPLETE [None]
  - BLOOD CREATININE INCREASED [None]
  - BLOOD UREA INCREASED [None]
  - BLOOD ALKALINE PHOSPHATASE INCREASED [None]
  - OSTEOPOROSIS [None]
  - ASPARTATE AMINOTRANSFERASE INCREASED [None]
  - ALANINE AMINOTRANSFERASE INCREASED [None]
